FAERS Safety Report 6028630-4 (Version None)
Quarter: 2009Q1

REPORT INFORMATION
  Report Type: 
  Country: None (occurrence: None)
  Receive Date: 20090106
  Receipt Date: 20081229
  Transmission Date: 20090719
  Serious: Yes (Hospitalization)
  Sender: FDA-Public Use
  Company Number: JP-AVENTIS-200821886GDDC

PATIENT
  Age: 60 Year
  Sex: Male

DRUGS (8)
  1. RIFAMPICIN [Suspect]
     Indication: TUBERCULOSIS
     Dosage: DOSE: UNK
     Dates: start: 20060716
  2. TACROLIMUS [Suspect]
     Indication: IMMUNOSUPPRESSION
  3. ISONIAZID [Concomitant]
     Indication: TUBERCULOSIS
     Dosage: DOSE: UNK
  4. PYRAZINAMIDE [Concomitant]
     Indication: TUBERCULOSIS
     Dosage: DOSE: UNK
  5. ETHAMBUTOL [Concomitant]
     Indication: TUBERCULOSIS
     Dosage: DOSE: UNK
  6. MYCOPHENOLATE MOFETIL [Concomitant]
     Indication: IMMUNOSUPPRESSION
     Dosage: DOSE: 1,500-500
  7. PREDNISOLONE [Concomitant]
     Indication: IMMUNOSUPPRESSION
  8. BASILIXIMAB [Concomitant]
     Indication: IMMUNOSUPPRESSION
     Dosage: DOSE: UNK

REACTIONS (3)
  - DRUG INTERACTION [None]
  - RENAL IMPAIRMENT [None]
  - TRANSPLANT REJECTION [None]
